FAERS Safety Report 23853139 (Version 1)
Quarter: 2024Q2

REPORT INFORMATION
  Report Type: Report from Study
  Country: US (occurrence: US)
  Receive Date: 20240514
  Receipt Date: 20240514
  Transmission Date: 20240716
  Serious: Yes (Other)
  Sender: FDA-Public Use
  Company Number: US-AUROBINDO-AUR-APL-2024-022407

PATIENT
  Age: 77 Year
  Sex: Male

DRUGS (6)
  1. CEFADROXIL [Suspect]
     Active Substance: CEFADROXIL
     Indication: Staphylococcal sepsis
     Dosage: 1000 MILLIGRAM, TWO TIMES A DAY
     Route: 048
  2. CEFADROXIL [Suspect]
     Active Substance: CEFADROXIL
     Dosage: 500 MILLIGRAM, TWO TIMES A DAY
     Route: 048
  3. OXACILLIN [Suspect]
     Active Substance: OXACILLIN SODIUM
     Indication: Staphylococcal sepsis
     Dosage: UNK (OXACILLIN RESISTANCE WITH MIC OF +GT;4 ?G/ML)
     Route: 065
  4. OXACILLIN [Suspect]
     Active Substance: OXACILLIN SODIUM
     Dosage: UNK (SHOWED OXACILLIN-RESISTANT WITH MIC OF +GT;2 ?G/ML)
     Route: 065
  5. GENTAMICIN [Concomitant]
     Active Substance: GENTAMICIN
     Indication: Product used for unknown indication
     Dosage: UNK
     Route: 065
  6. VANCOMYCIN [Concomitant]
     Active Substance: VANCOMYCIN
     Indication: Product used for unknown indication
     Dosage: UNK
     Route: 042

REACTIONS (2)
  - Gastrointestinal disorder [Unknown]
  - Drug resistance [Unknown]
